FAERS Safety Report 10596041 (Version 2)
Quarter: 2014Q4

REPORT INFORMATION
  Report Type: Spontaneous
  Country: US (occurrence: US)
  Receive Date: 20141120
  Receipt Date: 20141216
  Transmission Date: 20150529
  Serious: No
  Sender: FDA-Public Use
  Company Number: US-GLAXOSMITHKLINE-US2014GSK023775

PATIENT
  Sex: Female

DRUGS (6)
  1. LETARIS [Concomitant]
     Active Substance: AMBRISENTAN
  2. ADCIRCA [Concomitant]
     Active Substance: TADALAFIL
  3. FLOLAN [Suspect]
     Active Substance: EPOPROSTENOL SODIUM
     Dosage: 35.3 NG/KG/MIN, CONCENTRATION 60,000 NG/ML, PUMP RATE 72 ML/DAY, VIAL STRENGTH1.5 MG
     Route: 042
  4. FLOLAN [Suspect]
     Active Substance: EPOPROSTENOL SODIUM
     Indication: PULMONARY ARTERIAL HYPERTENSION
     Dosage: UNK
     Dates: start: 20100629
  5. POTASSIUM [Concomitant]
     Active Substance: POTASSIUM
  6. VELETRI [Concomitant]
     Active Substance: EPOPROSTENOL

REACTIONS (3)
  - Flushing [Unknown]
  - Pain in jaw [Unknown]
  - Blood potassium decreased [Unknown]
